FAERS Safety Report 9889118 (Version 1)
Quarter: 2014Q1

REPORT INFORMATION
  Report Type: Spontaneous
  Country: US (occurrence: None)
  Receive Date: 20140207
  Receipt Date: 20140207
  Transmission Date: 20141002
  Serious: Yes (Other)
  Sender: FDA-Public Use
  Company Number: 20140038

PATIENT
  Age: 58 Year
  Sex: Female

DRUGS (6)
  1. DEXAMETHASONE SODIUM PHOSPHATE [Suspect]
  2. NOVANTRONE [Suspect]
  3. ONCOVIN [Suspect]
  4. RITUXIMAB [Suspect]
  5. PREDNISOLONE [Suspect]
  6. FLUDARABINE [Suspect]

REACTIONS (4)
  - Myelodysplastic syndrome [None]
  - Neoplasm malignant [None]
  - Neoplasm recurrence [None]
  - Chromosomal deletion [None]
